FAERS Safety Report 21271761 (Version 1)
Quarter: 2022Q3

REPORT INFORMATION
  Report Type: Report from Study
  Country: CA (occurrence: CA)
  Receive Date: 20220830
  Receipt Date: 20220830
  Transmission Date: 20221027
  Serious: Yes (Death, Hospitalization)
  Sender: FDA-Public Use
  Company Number: CA-SA-SAC20220826001557

PATIENT
  Age: 60 Year
  Sex: Male
  Weight: 72.4 kg

DRUGS (23)
  1. ANTI-THYMOCYTE GLOBULIN (RABBIT) NOS [Suspect]
     Active Substance: LAPINE T-LYMPHOCYTE IMMUNE GLOBULIN
     Indication: Prophylaxis against graft versus host disease
     Dosage: 40 MG
     Dates: start: 20211208, end: 20211208
  2. ANTI-THYMOCYTE GLOBULIN (RABBIT) NOS [Suspect]
     Active Substance: LAPINE T-LYMPHOCYTE IMMUNE GLOBULIN
     Dosage: 160 MG
     Dates: start: 20211229, end: 20211229
  3. ANTI-THYMOCYTE GLOBULIN (RABBIT) NOS [Suspect]
     Active Substance: LAPINE T-LYMPHOCYTE IMMUNE GLOBULIN
     Dosage: 160 MG
     Dates: start: 20211230, end: 20211230
  4. METHOTREXATE [Suspect]
     Active Substance: METHOTREXATE
     Indication: Prophylaxis against graft versus host disease
     Dosage: 27 MG, 1X
     Dates: start: 20211231, end: 20211231
  5. METHOTREXATE [Suspect]
     Active Substance: METHOTREXATE
     Dosage: 18 MG, 1X
     Dates: start: 20220102, end: 20220102
  6. METHOTREXATE [Suspect]
     Active Substance: METHOTREXATE
     Dosage: 18 MG, 1X
     Dates: start: 20220105, end: 20220105
  7. METHOTREXATE [Suspect]
     Active Substance: METHOTREXATE
     Dosage: 18 MG, 1X
     Dates: start: 20220110, end: 20220110
  8. CYCLOSPORINE [Suspect]
     Active Substance: CYCLOSPORINE
     Indication: Prophylaxis against graft versus host disease
     Dosage: 425 MG, BID
     Dates: start: 20211229, end: 20211231
  9. CYCLOSPORINE [Suspect]
     Active Substance: CYCLOSPORINE
     Dosage: 300 MG, BID
     Dates: start: 20211231, end: 20220101
  10. CYCLOSPORINE [Suspect]
     Active Substance: CYCLOSPORINE
     Dosage: 250 MG, BID
     Dates: start: 20220101, end: 20220105
  11. CYCLOSPORINE [Suspect]
     Active Substance: CYCLOSPORINE
     Dosage: 150 MG, BID
     Dates: start: 20220105, end: 20220107
  12. CYCLOSPORINE [Suspect]
     Active Substance: CYCLOSPORINE
     Dosage: 175 MG, BID
     Dates: start: 20220107, end: 20220112
  13. CYCLOSPORINE [Suspect]
     Active Substance: CYCLOSPORINE
     Dosage: 150 MG, BID
     Dates: start: 20220112, end: 20220114
  14. CYCLOSPORINE [Suspect]
     Active Substance: CYCLOSPORINE
     Dosage: 300 MG, BID
     Dates: start: 20220114, end: 20220117
  15. CYCLOSPORINE [Suspect]
     Active Substance: CYCLOSPORINE
     Dosage: 150 MG, BID
     Dates: start: 20220117, end: 20220131
  16. CYCLOSPORINE [Suspect]
     Active Substance: CYCLOSPORINE
     Dosage: 125 MG, BID
     Dates: start: 20220131, end: 20220214
  17. CYCLOSPORINE [Suspect]
     Active Substance: CYCLOSPORINE
     Dosage: 100 MG, BID
     Dates: start: 20220214, end: 20220218
  18. CYCLOSPORINE [Suspect]
     Active Substance: CYCLOSPORINE
     Dosage: 125 MG, BID
     Dates: start: 20220218, end: 20220223
  19. CYCLOSPORINE [Suspect]
     Active Substance: CYCLOSPORINE
     Dosage: 100 MG, BID
     Dates: start: 20220223, end: 20220303
  20. CYCLOSPORINE [Suspect]
     Active Substance: CYCLOSPORINE
     Dosage: 75 MG, BID
     Dates: start: 20220303, end: 20220310
  21. CYCLOSPORINE [Suspect]
     Active Substance: CYCLOSPORINE
     Dosage: 50 MG, BID
     Dates: start: 20220310, end: 20220317
  22. CYCLOSPORINE [Suspect]
     Active Substance: CYCLOSPORINE
     Dosage: 25 MG, BID
     Dates: start: 20220317, end: 20220320
  23. CYCLOSPORINE [Suspect]
     Active Substance: CYCLOSPORINE
     Dosage: 25 MG, BID
     Dates: start: 20220320, end: 20220324

REACTIONS (1)
  - Acute myeloid leukaemia recurrent [Fatal]

NARRATIVE: CASE EVENT DATE: 20220519
